FAERS Safety Report 10062142 (Version 1)
Quarter: 2014Q1

REPORT INFORMATION
  Report Type: Spontaneous
  Country: US (occurrence: None)
  Receive Date: 20140312
  Receipt Date: 20140312
  Transmission Date: 20141002
  Serious: Yes (Other)
  Sender: FDA-Public Use
  Company Number: 1000046075

PATIENT
  Age: 51 Year
  Sex: Female

DRUGS (2)
  1. SAVELLA (MILNACIPRAN HYDROCHLORIDE) (12.5 MILLIGRAM, TABLETS) [Suspect]
     Indication: FIBROMYALGIA
     Route: 048
     Dates: start: 20130528, end: 20130528
  2. XANAX (ALPRAZOLAM) (ALPRAZOLAM) [Concomitant]

REACTIONS (4)
  - Hypertension [None]
  - Palpitations [None]
  - Hallucination, visual [None]
  - Rash macular [None]
